FAERS Safety Report 6582271-9 (Version None)
Quarter: 2010Q1

REPORT INFORMATION
  Report Type: 
  Country: None (occurrence: None)
  Receive Date: 20100216
  Receipt Date: 20091207
  Transmission Date: 20100710
  Serious: No
  Sender: FDA-Public Use
  Company Number: A0833880A

PATIENT
  Age: 58 Year
  Sex: Female

DRUGS (4)
  1. VERAMYST [Suspect]
     Dosage: 4SPR PER DAY
     Route: 045
  2. VENTOLIN [Concomitant]
  3. HYDROCHLOROTHIAZIDE [Concomitant]
  4. LORATADINE [Concomitant]

REACTIONS (4)
  - DRUG INEFFECTIVE [None]
  - INCREASED UPPER AIRWAY SECRETION [None]
  - OVERDOSE [None]
  - RHINORRHOEA [None]
